FAERS Safety Report 4974507-2 (Version None)
Quarter: 2006Q1

REPORT INFORMATION
  Report Type: 
  Country: None (occurrence: None)
  Receive Date: 20060216
  Receipt Date: 20060106
  Transmission Date: 20060701
  Serious: No
  Sender: FDA-Public Use
  Company Number: TPA2006A00042

PATIENT
  Age: 70 Year
  Sex: Female
  Weight: 54.4316 kg

DRUGS (9)
  1. ROZEREM [Suspect]
     Indication: INSOMNIA
     Dosage: SEE IMAGE
     Route: 048
     Dates: start: 20051221, end: 20051222
  2. ROZEREM [Suspect]
     Indication: INSOMNIA
     Dosage: SEE IMAGE
     Route: 048
     Dates: start: 20051222, end: 20060103
  3. ROZEREM [Suspect]
     Indication: INSOMNIA
     Dosage: SEE IMAGE
     Route: 048
     Dates: start: 20060103
  4. VALIUM (DIAZEPAM) (5 MILLIGRAM) [Concomitant]
  5. 4 HOUR QUICK-ACTING TYLENOL (PARACETAMOL ) [Concomitant]
  6. 8-HOUR TYLENOL (PARACETAMOL) [Concomitant]
  7. MELATONIN (MELATONIN) [Concomitant]
  8. BENADRYL [Concomitant]
  9. ALLERGY SHOTS (ALL OTHER THERAPEUTIC PRODUCTS) (INJECTION) [Concomitant]

REACTIONS (2)
  - INTENTIONAL OVERDOSE [None]
  - MIDDLE INSOMNIA [None]
